FAERS Safety Report 5741875-3 (Version None)
Quarter: 2008Q2

REPORT INFORMATION
  Report Type: 
  Country: None (occurrence: None)
  Receive Date: 20080514
  Receipt Date: 20080514
  Transmission Date: 20081010
  Serious: No
  Sender: FDA-Public Use
  Company Number: None

PATIENT
  Age: 61 Year
  Sex: Female
  Weight: 94.8018 kg

DRUGS (1)
  1. SINGULAIR [Suspect]
     Indication: ASTHMA
     Dosage: QD
     Dates: start: 20030601, end: 20080512

REACTIONS (3)
  - ABNORMAL BEHAVIOUR [None]
  - MOOD ALTERED [None]
  - PERSONALITY CHANGE [None]
